FAERS Safety Report 8051315-X (Version None)
Quarter: 2012Q1

REPORT INFORMATION
  Report Type: 
  Country: None (occurrence: None)
  Receive Date: 20120117
  Receipt Date: 20120105
  Transmission Date: 20120608
  Serious: Yes (Other)
  Sender: FDA-Public Use
  Company Number: US-ASTRAZENECA-2012SE01192

PATIENT
  Sex: Female

DRUGS (3)
  1. SEROQUEL [Suspect]
     Indication: SCHIZOAFFECTIVE DISORDER
     Route: 048
  2. DULOXETIME HYDROCHLORIDE [Concomitant]
  3. VALPROATE SODIUM [Concomitant]

REACTIONS (2)
  - LEUKOCYTOSIS [None]
  - THROMBOCYTOSIS [None]
